FAERS Safety Report 8420868-1 (Version None)
Quarter: 2012Q2

REPORT INFORMATION
  Report Type: 
  Country: None (occurrence: None)
  Receive Date: 20120531
  Receipt Date: 20120515
  Transmission Date: 20120825
  Serious: Yes (Death)
  Sender: FDA-Public Use
  Company Number: FK201201177

PATIENT
  Age: 33 Year
  Sex: Male
  Weight: 130 kg

DRUGS (2)
  1. PROPOFOL [Suspect]
     Indication: MAINTENANCE OF ANAESTHESIA
     Dosage: INTRAVENOUS (NOT OTHERWISE SPECIFIED)
     Route: 042
  2. SUXAMETHONIUM (SUXAMETHONIUM) [Suspect]

REACTIONS (11)
  - HAEMOGLOBIN DECREASED [None]
  - BLOOD CREATININE INCREASED [None]
  - BLOOD POTASSIUM DECREASED [None]
  - CARDIAC ARREST [None]
  - PULMONARY ALVEOLAR HAEMORRHAGE [None]
  - CARDIO-RESPIRATORY ARREST [None]
  - BRONCHOSPASM [None]
  - HYPOTENSION [None]
  - ANAPHYLACTIC SHOCK [None]
  - PULSELESS ELECTRICAL ACTIVITY [None]
  - PLATELET COUNT DECREASED [None]
